FAERS Safety Report 8825818 (Version 1)
Quarter: 2012Q4

REPORT INFORMATION
  Report Type: 
  Country: US (occurrence: US)
  Receive Date: 20121004
  Receipt Date: 20121004
  Transmission Date: 20130627
  Serious: Yes (Hospitalization)
  Sender: FDA-Public Use
  Company Number: US-ASTRAZENECA-2012SE74283

PATIENT
  Age: 89 Year
  Sex: Female
  Weight: 56.7 kg

DRUGS (4)
  1. NEXIUM [Suspect]
     Indication: GASTROOESOPHAGEAL REFLUX DISEASE
     Route: 048
  2. PRILOSEC [Suspect]
     Indication: GASTROOESOPHAGEAL REFLUX DISEASE
     Dosage: DAILY
     Route: 048
  3. METOPROLOL [Suspect]
     Indication: CARDIAC DISORDER
     Route: 048
     Dates: start: 2011
  4. ATORVASTATIN [Concomitant]
     Indication: BLOOD CHOLESTEROL INCREASED
     Route: 048

REACTIONS (4)
  - Influenza [Unknown]
  - Dehydration [Unknown]
  - Dysphagia [Recovered/Resolved]
  - Drug ineffective [Unknown]
